FAERS Safety Report 9100099 (Version 2)
Quarter: 2013Q1

REPORT INFORMATION
  Report Type: Spontaneous
  Country: US (occurrence: US)
  Receive Date: 20130215
  Receipt Date: 20130319
  Transmission Date: 20140127
  Serious: Yes (Other)
  Sender: FDA-Public Use
  Company Number: US-TEVA-385985USA

PATIENT
  Age: 25 Year
  Sex: Female
  Weight: 57.66 kg

DRUGS (6)
  1. PARAGARD 380A [Suspect]
     Indication: CONTRACEPTION
     Route: 015
     Dates: start: 20130129, end: 20130129
  2. TOPAMAX [Concomitant]
  3. CALCIUM [Concomitant]
  4. FOLIC ACID [Concomitant]
  5. FISH OIL [Concomitant]
  6. PROBIOTICS [Concomitant]

REACTIONS (5)
  - Convulsion [Recovered/Resolved]
  - Pain [Recovered/Resolved]
  - Loss of consciousness [Recovered/Resolved with Sequelae]
  - Nausea [Recovered/Resolved]
  - Dizziness [Recovered/Resolved]
